FAERS Safety Report 13780857 (Version 2)
Quarter: 2017Q3

REPORT INFORMATION
  Report Type: Spontaneous
  Country: US (occurrence: US)
  Receive Date: 20170724
  Receipt Date: 20170831
  Transmission Date: 20171127
  Serious: No
  Sender: FDA-Public Use
  Company Number: US-PFIZER INC-2017269015

PATIENT
  Age: 59 Year
  Sex: Female

DRUGS (2)
  1. XELJANZ [Suspect]
     Active Substance: TOFACITINIB CITRATE
     Indication: RHEUMATOID ARTHRITIS
     Dosage: 10 MG, DAILY (2 TABLETS QD)
     Dates: start: 20170419
  2. XELJANZ [Suspect]
     Active Substance: TOFACITINIB CITRATE
     Dosage: 5 MG, 2X/DAY
     Dates: start: 20170420

REACTIONS (3)
  - Joint swelling [Unknown]
  - Intentional product misuse [Unknown]
  - Pain [Unknown]

NARRATIVE: CASE EVENT DATE: 201705
